FAERS Safety Report 5306422-9 (Version None)
Quarter: 2007Q2

REPORT INFORMATION
  Report Type: 
  Country: None (occurrence: None)
  Receive Date: 20070419
  Receipt Date: 20070403
  Transmission Date: 20071010
  Serious: No
  Sender: FDA-Public Use
  Company Number: 2007BI002623

PATIENT
  Age: 63 Year
  Sex: Female

DRUGS (4)
  1. NATALIZUMAB (NATALIZUMAB) [Suspect]
     Indication: MULTIPLE SCLEROSIS
     Dosage: 300 MG; QM; IV
     Route: 042
     Dates: start: 20060921, end: 20070206
  2. DULOXETIN [Concomitant]
  3. DIURESAL [Concomitant]
  4. MICTONORM [Concomitant]

REACTIONS (5)
  - GENERAL PHYSICAL HEALTH DETERIORATION [None]
  - MULTIPLE SCLEROSIS RELAPSE [None]
  - OSTEOCHONDROSIS [None]
  - PROGRESSIVE RELAPSING MULTIPLE SCLEROSIS [None]
  - URINARY INCONTINENCE [None]
